FAERS Safety Report 4536430-7 (Version None)
Quarter: 2004Q4

REPORT INFORMATION
  Report Type: 
  Country: None (occurrence: None)
  Receive Date: 20041223
  Receipt Date: 20041012
  Transmission Date: 20050328
  Serious: No
  Sender: FDA-Public Use
  Company Number: US-GLAXOSMITHKLINE-A0529512A

PATIENT
  Age: 84 Year
  Sex: Male
  Weight: 77.7 kg

DRUGS (7)
  1. FLONASE [Suspect]
     Dosage: 50MCG TWICE PER DAY
     Route: 045
  2. PRILOSEC [Concomitant]
  3. LOPRESSOR [Concomitant]
  4. LASIX [Concomitant]
  5. CAPTOPRIL [Concomitant]
  6. DILTIAZEM [Concomitant]
  7. PHOSLO [Concomitant]

REACTIONS (2)
  - DIZZINESS [None]
  - DRUG INEFFECTIVE [None]
